FAERS Safety Report 7799843-6 (Version None)
Quarter: 2011Q4

REPORT INFORMATION
  Report Type: 
  Country: None (occurrence: None)
  Receive Date: 20111006
  Receipt Date: 20110927
  Transmission Date: 20120403
  Serious: Yes (Hospitalization)
  Sender: FDA-Public Use
  Company Number: BR-ASTRAZENECA-2011SE58175

PATIENT
  Age: 9 Year
  Sex: Female

DRUGS (2)
  1. OMEPRAZOLE MAGNESIUM [Suspect]
     Indication: GASTROOESOPHAGEAL REFLUX DISEASE
     Route: 048
     Dates: start: 20070101
  2. OMEPRAZOLE MAGNESIUM [Suspect]
     Route: 048
     Dates: start: 20110701

REACTIONS (5)
  - NOSOCOMIAL INFECTION [None]
  - PROCEDURAL COMPLICATION [None]
  - PATIENT-DEVICE INCOMPATIBILITY [None]
  - SCOLIOSIS [None]
  - INCORRECT DOSE ADMINISTERED [None]
